FAERS Safety Report 7164590-0 (Version None)
Quarter: 2010Q4

REPORT INFORMATION
  Report Type: 
  Country: None (occurrence: None)
  Receive Date: 20101215
  Receipt Date: 20101209
  Transmission Date: 20110411
  Serious: Yes (Other)
  Sender: FDA-Public Use
  Company Number: DK-ABBOTT-10P-044-0690585-00

PATIENT
  Sex: Female

DRUGS (4)
  1. HUMIRA [Suspect]
     Indication: PSORIATIC ARTHROPATHY
     Dates: start: 20081016
  2. REMICADE [Concomitant]
     Indication: PSORIATIC ARTHROPATHY
  3. METHOTREXATE UNKNOWN MAH [Concomitant]
     Indication: SPONDYLITIS
  4. TODOLAC [Concomitant]
     Indication: PSORIATIC ARTHROPATHY

REACTIONS (9)
  - ARTHRALGIA [None]
  - BACK PAIN [None]
  - COLOUR BLINDNESS ACQUIRED [None]
  - OPTIC NEURITIS [None]
  - PAIN IN EXTREMITY [None]
  - SENSORY DISTURBANCE [None]
  - VISUAL ACUITY REDUCED [None]
  - VISUAL FIELD DEFECT [None]
  - VISUAL IMPAIRMENT [None]
